FAERS Safety Report 7025550-3 (Version None)
Quarter: 2010Q4

REPORT INFORMATION
  Report Type: 
  Country: None (occurrence: None)
  Receive Date: 20101003
  Receipt Date: 20100922
  Transmission Date: 20110411
  Serious: Yes (Other)
  Sender: FDA-Public Use
  Company Number: PHHY2010US62478

PATIENT

DRUGS (1)
  1. TEGRETOL-XR [Suspect]
     Indication: EPILEPSY
     Route: 048

REACTIONS (5)
  - COELIAC DISEASE [None]
  - DRUG INEFFECTIVE [None]
  - EPILEPSY [None]
  - MEMORY IMPAIRMENT [None]
  - METABOLIC DISORDER [None]
